FAERS Safety Report 23693571 (Version 1)
Quarter: 2024Q2

REPORT INFORMATION
  Report Type: Spontaneous
  Country: CN (occurrence: CN)
  Receive Date: 20240401
  Receipt Date: 20240401
  Transmission Date: 20240716
  Serious: Yes (Hospitalization, Other)
  Sender: FDA-Public Use
  Company Number: CN-ELI_LILLY_AND_COMPANY-CN202403013927

PATIENT
  Age: 77 Year
  Sex: Male
  Weight: 70 kg

DRUGS (3)
  1. ALIMTA [Suspect]
     Active Substance: PEMETREXED DISODIUM
     Indication: Lung neoplasm malignant
     Dosage: 900 MG, SINGLE (1 TIME 1 DAY)
     Route: 041
     Dates: start: 20240301, end: 20240301
  2. BEVACIZUMAB [Suspect]
     Active Substance: BEVACIZUMAB
     Indication: Lung neoplasm malignant
     Dosage: 600 MG, SINGLE (1 TIME 1 DAY)
     Route: 041
     Dates: start: 20240229, end: 20240229
  3. CARBOPLATIN [Suspect]
     Active Substance: CARBOPLATIN
     Indication: Lung neoplasm malignant
     Dosage: 0.4 G, SINGLE (1 TIME 1 DAY)
     Route: 041
     Dates: start: 20240301, end: 20240301

REACTIONS (8)
  - Epistaxis [Recovering/Resolving]
  - Platelet count decreased [Recovering/Resolving]
  - Agranulocytosis [Recovering/Resolving]
  - White blood cell count decreased [Recovering/Resolving]
  - Pyrexia [Recovering/Resolving]
  - Anaemia [Recovering/Resolving]
  - Fatigue [Recovering/Resolving]
  - Decreased appetite [Recovering/Resolving]

NARRATIVE: CASE EVENT DATE: 20240307
